FAERS Safety Report 6212064-3 (Version None)
Quarter: 2009Q2

REPORT INFORMATION
  Report Type: 
  Country: None (occurrence: None)
  Receive Date: 20090602
  Receipt Date: 20090518
  Transmission Date: 20091009
  Serious: Yes (Other)
  Sender: FDA-Public Use
  Company Number: US-PFIZER INC-2009215261

PATIENT
  Sex: Female
  Weight: 61 kg

DRUGS (6)
  1. LIPITOR [Suspect]
     Dates: start: 20050101, end: 20090514
  2. TEGRETOL [Interacting]
     Indication: GRAND MAL CONVULSION
     Dosage: FREQUENCY: 2X/DAY, EVERY DAY;
  3. TEGRETOL [Interacting]
     Indication: COMPLEX PARTIAL SEIZURES
  4. ATENOLOL [Concomitant]
     Dosage: 25 MG, UNK
  5. THYROID TAB [Concomitant]
     Dosage: 15 MG, UNK
  6. LISINOPRIL [Concomitant]
     Dosage: UNK

REACTIONS (6)
  - CONSTIPATION [None]
  - CONVULSION [None]
  - DRUG INTERACTION [None]
  - DRUG TOXICITY [None]
  - SOMNOLENCE [None]
  - WEIGHT INCREASED [None]
